FAERS Safety Report 23827626 (Version 2)
Quarter: 2024Q2

REPORT INFORMATION
  Report Type: Spontaneous
  Country: US (occurrence: US)
  Receive Date: 20240507
  Receipt Date: 20240530
  Transmission Date: 20240716
  Serious: Yes (Hospitalization, Other)
  Sender: FDA-Public Use
  Company Number: US-AURINIA PHARMACEUTICALS INC.-AUR-005781

PATIENT
  Sex: Female

DRUGS (1)
  1. LUPKYNIS [Suspect]
     Active Substance: VOCLOSPORIN
     Indication: Product used for unknown indication
     Dosage: UNK
     Route: 048

REACTIONS (7)
  - Diverticulitis [Unknown]
  - Dehydration [Unknown]
  - Diarrhoea [Unknown]
  - Urinary tract infection [Unknown]
  - Abdominal pain lower [Recovering/Resolving]
  - Fatigue [Recovering/Resolving]
  - Onychoclasis [Unknown]
